FAERS Safety Report 6220084-8 (Version None)
Quarter: 2009Q2

REPORT INFORMATION
  Report Type: 
  Country: None (occurrence: None)
  Receive Date: 20090609
  Receipt Date: 20090527
  Transmission Date: 20091009
  Serious: Yes (Hospitalization)
  Sender: FDA-Public Use
  Company Number: US-ELI_LILLY_AND_COMPANY-US200905005370

PATIENT
  Sex: Female

DRUGS (6)
  1. HUMALOG [Suspect]
     Route: 058
  2. ALTACE [Concomitant]
  3. IMDUR [Concomitant]
  4. TOPROL-XL [Concomitant]
  5. LOVAZA [Concomitant]
  6. LEXAPRO [Concomitant]

REACTIONS (3)
  - BLOOD GLUCOSE INCREASED [None]
  - CHEST DISCOMFORT [None]
  - DRUG INEFFECTIVE [None]
